FAERS Safety Report 5691090-7 (Version None)
Quarter: 2008Q2

REPORT INFORMATION
  Report Type: 
  Country: None (occurrence: None)
  Receive Date: 20080401
  Receipt Date: 20080331
  Transmission Date: 20081010
  Serious: Yes (Death, Life-Threatening, Hospitalization)
  Sender: FDA-Public Use
  Company Number: US-BOEHRINGER INGELHEIM GMBH, GERMANY-2008-BP-04866RO

PATIENT
  Sex: Male
  Weight: 70 kg

DRUGS (5)
  1. PREDNISONE [Suspect]
     Dates: start: 20070801, end: 20070906
  2. METHOTREXATE [Suspect]
     Dates: start: 20070801, end: 20070906
  3. HUMIRA [Suspect]
     Indication: CROHN'S DISEASE
     Route: 058
     Dates: start: 20070816, end: 20070816
  4. HUMIRA [Suspect]
     Route: 058
     Dates: start: 20070830, end: 20070830
  5. PREDNISONE [Concomitant]
     Indication: CROHN'S DISEASE
     Route: 048
     Dates: start: 19800101

REACTIONS (34)
  - ACUTE RESPIRATORY DISTRESS SYNDROME [None]
  - ACUTE RESPIRATORY FAILURE [None]
  - ADRENAL ATROPHY [None]
  - ANAEMIA [None]
  - BACTERAEMIA [None]
  - BLOOD LACTATE DEHYDROGENASE INCREASED [None]
  - BONE MARROW FAILURE [None]
  - CELL DEATH [None]
  - CHILLS [None]
  - COLONIC STENOSIS [None]
  - COUGH [None]
  - DIFFUSE ALVEOLAR DAMAGE [None]
  - DYSPNOEA [None]
  - EXTRAMEDULLARY HAEMOPOIESIS [None]
  - GLOMERULOSCLEROSIS [None]
  - HYPOTENSION [None]
  - HYPOXIA [None]
  - IMMUNOSUPPRESSION [None]
  - LIVER FUNCTION TEST ABNORMAL [None]
  - LUNG ABSCESS [None]
  - ORAL INTAKE REDUCED [None]
  - PLEURITIC PAIN [None]
  - PNEUMONIA [None]
  - PNEUMOTHORAX [None]
  - PULMONARY MASS [None]
  - PYREXIA [None]
  - RALES [None]
  - SEPSIS [None]
  - SPLEEN DISORDER [None]
  - STAPHYLOCOCCAL INFECTION [None]
  - SUBCUTANEOUS EMPHYSEMA [None]
  - TACHYCARDIA [None]
  - THYROID NEOPLASM [None]
  - TRACHEAL ULCER [None]
